FAERS Safety Report 8256017-2 (Version None)
Quarter: 2012Q1

REPORT INFORMATION
  Report Type: 
  Country: None (occurrence: None)
  Receive Date: 20120329
  Receipt Date: 20120313
  Transmission Date: 20120608
  Serious: Yes (Other)
  Sender: FDA-Public Use
  Company Number: PNIS20120015

PATIENT
  Age: 47 Year
  Sex: Female

DRUGS (5)
  1. CYCLOPHOSPHAMIDE [Concomitant]
  2. PREDNISOLONE SODIUM PHOSPHATE [Suspect]
     Indication: GRAFT VERSUS HOST DISEASE
     Dosage: 5-10MG/DAY
     Dates: start: 20081201, end: 20090501
  3. CYCLOSPORIN-A (CICLOSPORIN) (CICLOSPORIN) [Concomitant]
  4. ANTI-THYMOCYTE GLOBULIN NOS [Suspect]
     Indication: STEM CELL TRANSPLANT
     Dosage: 40 MG/KG
  5. METHOTREXATE [Concomitant]

REACTIONS (4)
  - ANGIOCENTRIC LYMPHOMA [None]
  - BLOOD LACTATE DEHYDROGENASE INCREASED [None]
  - ACUTE GRAFT VERSUS HOST DISEASE IN SKIN [None]
  - POST TRANSPLANT LYMPHOPROLIFERATIVE DISORDER [None]
